FAERS Safety Report 9827382 (Version 1)
Quarter: 2013Q4

REPORT INFORMATION
  Report Type: Spontaneous
  Country: US (occurrence: None)
  Receive Date: 20131120
  Receipt Date: 20131120
  Transmission Date: 20140711
  Serious: No
  Sender: FDA-Public Use
  Company Number: 1000047803

PATIENT
  Age: 40 Year
  Sex: Female

DRUGS (3)
  1. VIIBRYD (VILAZODONE HYDROCHLORIDE) (10 MILLIGRAM TABLETS) [Suspect]
     Indication: DEPRESSION
     Route: 048
     Dates: start: 201307, end: 201307
  2. VIIBRYD (VILAZODONE HYDROCHLORIDE) [Suspect]
     Indication: DEPRESSION
     Route: 048
     Dates: start: 201307, end: 201307
  3. CLONAZEPAM(CLONAZEPAM)(CLONAZEPAM) [Concomitant]

REACTIONS (5)
  - Insomnia [None]
  - Anxiety [None]
  - Panic attack [None]
  - Weight increased [None]
  - Paranoia [None]
